FAERS Safety Report 9136750 (Version 1)
Quarter: 2013Q1

REPORT INFORMATION
  Report Type: Spontaneous
  Country: US (occurrence: US)
  Receive Date: 20130304
  Receipt Date: 20130304
  Transmission Date: 20140127
  Serious: No
  Sender: FDA-Public Use
  Company Number: US-ABBOTT-12P-163-0947184-00

PATIENT
  Sex: Female

DRUGS (1)
  1. ANDROGEL 1% [Suspect]
     Indication: PREMATURE MENOPAUSE
     Dosage: HALF OF A TEAR DROP
     Dates: start: 201012

REACTIONS (1)
  - Off label use [Unknown]
